FAERS Safety Report 21937718 (Version 3)
Quarter: 2023Q1

REPORT INFORMATION
  Report Type: Spontaneous
  Country: US (occurrence: US)
  Receive Date: 20230201
  Receipt Date: 20230316
  Transmission Date: 20230418
  Serious: Yes (Other)
  Sender: FDA-Public Use
  Company Number: US-BRISTOL-MYERS SQUIBB COMPANY-2023-015131

PATIENT
  Age: 79 Year
  Sex: Male

DRUGS (1)
  1. LENALIDOMIDE [Suspect]
     Active Substance: LENALIDOMIDE
     Indication: Plasma cell myeloma
     Dosage: FREQUENCY: TAKE 1 CAPSULE (10 MG) BY MOUTH DAILY FOR 3 WEEKS ON AND 1 WEEK OFF.
     Route: 048
     Dates: start: 20221031

REACTIONS (3)
  - Urinary tract infection [Not Recovered/Not Resolved]
  - Full blood count decreased [Unknown]
  - Bronchitis [Unknown]
